FAERS Safety Report 26199288 (Version 1)
Quarter: 2025Q4

REPORT INFORMATION
  Report Type: Spontaneous
  Country: CA (occurrence: CA)
  Receive Date: 20251225
  Receipt Date: 20251225
  Transmission Date: 20260118
  Serious: Yes (Hospitalization)
  Sender: SANOFI AVENTIS
  Company Number: CA-SA-2025SA376095

PATIENT
  Age: 64 Year
  Sex: Female

DRUGS (2)
  1. FASTURTEC [Suspect]
     Active Substance: RASBURICASE
     Indication: Chemotherapy
     Dosage: UNK
     Route: 065
  2. METOCLOPRAMIDE [Concomitant]
     Active Substance: METOCLOPRAMIDE
     Dosage: UNK

REACTIONS (3)
  - Asthenia [Recovered/Resolved]
  - Hypoxia [Recovered/Resolved]
  - Hypersensitivity [Recovered/Resolved]
